FAERS Safety Report 9924916 (Version 2)
Quarter: 2014Q2

REPORT INFORMATION
  Report Type: Spontaneous
  Country: DE (occurrence: DE)
  Receive Date: 20140226
  Receipt Date: 20140402
  Transmission Date: 20141212
  Serious: Yes (Hospitalization)
  Sender: FDA-Public Use
  Company Number: DE-BRISTOL-MYERS SQUIBB COMPANY-20271573

PATIENT
  Age: 81 Year
  Sex: Male

DRUGS (8)
  1. ELIQUIS [Suspect]
     Dosage: TABLET;ONGOING?ROA:FEEDING TUBE
  2. SIMVASTATIN [Concomitant]
  3. ACETYLDIGOXIN [Concomitant]
  4. METOPROLOL [Concomitant]
  5. METFORMIN [Concomitant]
  6. SODIUM CHLORIDE [Concomitant]
     Dosage: TABLET
  7. CANDESARTAN [Concomitant]
  8. AMLODIPINE [Concomitant]

REACTIONS (1)
  - Gastrointestinal tube insertion [Not Recovered/Not Resolved]
